FAERS Safety Report 24892124 (Version 5)
Quarter: 2025Q2

REPORT INFORMATION
  Report Type: Spontaneous
  Country: IT (occurrence: IT)
  Receive Date: 20250128
  Receipt Date: 20250603
  Transmission Date: 20250716
  Serious: Yes (Death, Life-Threatening, Hospitalization, Other)
  Sender: CELLTRION
  Company Number: IT-BAXTER-2024BAX021665

PATIENT

DRUGS (77)
  1. RITUXIMAB [Suspect]
     Active Substance: RITUXIMAB
     Indication: Richter^s syndrome
     Route: 042
     Dates: start: 20240524, end: 20240524
  2. RITUXIMAB [Suspect]
     Active Substance: RITUXIMAB
     Dates: start: 20240221, end: 20240417
  3. RITUXIMAB [Suspect]
     Active Substance: RITUXIMAB
     Dates: start: 20240506, end: 20240506
  4. RITUXIMAB [Suspect]
     Active Substance: RITUXIMAB
     Dates: start: 20240430, end: 20240509
  5. DOXORUBICIN HYDROCHLORIDE [Suspect]
     Active Substance: DOXORUBICIN HYDROCHLORIDE
     Indication: Richter^s syndrome
     Route: 042
     Dates: start: 20240524, end: 20240524
  6. DOXORUBICIN HYDROCHLORIDE [Suspect]
     Active Substance: DOXORUBICIN HYDROCHLORIDE
     Dates: start: 20240502, end: 20240502
  7. CYCLOPHOSPHAMIDE [Suspect]
     Active Substance: CYCLOPHOSPHAMIDE
     Indication: Richter^s syndrome
     Dates: start: 20240502, end: 20240502
  8. CYCLOPHOSPHAMIDE [Suspect]
     Active Substance: CYCLOPHOSPHAMIDE
     Route: 042
     Dates: start: 20240524, end: 20240524
  9. EPCORITAMAB [Suspect]
     Active Substance: EPCORITAMAB
     Indication: Richter^s syndrome
     Route: 058
     Dates: start: 20240524, end: 20240524
  10. EPCORITAMAB [Suspect]
     Active Substance: EPCORITAMAB
     Route: 058
     Dates: start: 20240531, end: 20240531
  11. EPCORITAMAB [Suspect]
     Active Substance: EPCORITAMAB
     Route: 058
     Dates: start: 20240531, end: 20240531
  12. VINCRISTINE [Suspect]
     Active Substance: VINCRISTINE
     Indication: Richter^s syndrome
     Route: 042
     Dates: start: 20240524, end: 20240524
  13. PREDNISONE [Suspect]
     Active Substance: PREDNISONE
     Indication: Richter^s syndrome
     Route: 048
  14. PREDNISONE [Suspect]
     Active Substance: PREDNISONE
  15. OXYGEN [Suspect]
     Active Substance: OXYGEN
     Indication: Product used for unknown indication
     Dates: start: 20240430
  16. AMINO ACIDS\CARBOHYDRATES\MINERALS\VITAMINS [Suspect]
     Active Substance: AMINO ACIDS\CARBOHYDRATES\MINERALS\VITAMINS
     Indication: Product used for unknown indication
     Dates: start: 20240514
  17. FENTANYL [Suspect]
     Active Substance: FENTANYL
     Indication: Product used for unknown indication
     Dates: start: 20240530
  18. ALBUMIN HUMAN [Suspect]
     Active Substance: ALBUMIN HUMAN
     Indication: Product used for unknown indication
     Dates: start: 20240530
  19. CHLORPHENIRAMINE MALEATE [Concomitant]
     Active Substance: CHLORPHENIRAMINE MALEATE
     Indication: Premedication
     Route: 042
     Dates: start: 20240524, end: 20240531
  20. ACETAMINOPHEN [Concomitant]
     Active Substance: ACETAMINOPHEN
     Indication: Premedication
     Route: 048
     Dates: start: 20240524, end: 20240531
  21. ACETAMINOPHEN [Concomitant]
     Active Substance: ACETAMINOPHEN
     Route: 042
     Dates: start: 20240506
  22. ACETAMINOPHEN [Concomitant]
     Active Substance: ACETAMINOPHEN
     Route: 042
     Dates: start: 20240531
  23. DEXAMETHASONE [Concomitant]
     Active Substance: DEXAMETHASONE
  24. CASPOFUNGIN [Concomitant]
     Active Substance: CASPOFUNGIN
     Dates: start: 20240511
  25. FILGRASTIM [Concomitant]
     Active Substance: FILGRASTIM
     Dates: start: 20240507, end: 20240512
  26. PIPERACILLIN [Concomitant]
     Active Substance: PIPERACILLIN
     Dates: start: 20240507, end: 20240519
  27. VANCOMYCIN [Concomitant]
     Active Substance: VANCOMYCIN
     Dates: start: 20240509, end: 20240518
  28. LEVOFLOXACIN [Concomitant]
     Active Substance: LEVOFLOXACIN
     Dates: start: 20240511, end: 20240519
  29. LEVOFLOXACIN [Concomitant]
     Active Substance: LEVOFLOXACIN
  30. RASBURICASE [Concomitant]
     Active Substance: RASBURICASE
     Dates: start: 20240430
  31. DEXAMETHASONE PHOSPHATE [Concomitant]
     Active Substance: DEXAMETHASONE PHOSPHATE
     Dates: start: 20240524, end: 20240604
  32. DEXAMETHASONE PHOSPHATE [Concomitant]
     Active Substance: DEXAMETHASONE PHOSPHATE
     Dates: start: 20240501, end: 20240506
  33. HYDROCORTISONE [Concomitant]
     Active Substance: HYDROCORTISONE
     Dates: start: 20240506, end: 20240506
  34. BECLOMETHASONE DIPROPIONATE [Concomitant]
     Active Substance: BECLOMETHASONE DIPROPIONATE
     Dates: start: 20240601
  35. FUROSEMIDE [Concomitant]
     Active Substance: FUROSEMIDE
     Dates: start: 20240430, end: 20240503
  36. PANTOPRAZOLE [Concomitant]
     Active Substance: PANTOPRAZOLE
     Dates: start: 20240501
  37. ENOXAPARIN [Concomitant]
     Active Substance: ENOXAPARIN
     Dates: start: 20240430, end: 20240509
  38. ACYCLOVIR [Concomitant]
     Active Substance: ACYCLOVIR
     Dates: start: 20240430
  39. AMINO ACIDS, SOURCE UNSPECIFIED [Concomitant]
     Active Substance: AMINO ACIDS, SOURCE UNSPECIFIED
     Dates: start: 20240501, end: 20240530
  40. CANRENOATE POTASSIUM [Concomitant]
     Active Substance: CANRENOATE POTASSIUM
     Dates: start: 20240501, end: 20240503
  41. PALONOSETRON [Concomitant]
     Active Substance: PALONOSETRON
     Dates: start: 20240502, end: 20240502
  42. ALPRAZOLAM [Concomitant]
     Active Substance: ALPRAZOLAM
     Dates: start: 20240502
  43. LEVOSULPIRIDE [Concomitant]
     Active Substance: LEVOSULPIRIDE
     Dates: start: 20240503
  44. CEFTRIAXONE [Concomitant]
     Active Substance: CEFTRIAXONE
     Dates: start: 20240504, end: 20240507
  45. TRAMADOL [Concomitant]
     Active Substance: TRAMADOL
     Dates: start: 20240516
  46. DIHYDROCODEINE;PENTETRAZOL [Concomitant]
     Dates: start: 20240516, end: 20240529
  47. LINEZOLID [Concomitant]
     Active Substance: LINEZOLID
     Dates: start: 20240518
  48. MEROPENEM [Concomitant]
     Active Substance: MEROPENEM
     Dates: start: 20240519
  49. VORICONAZOLE [Concomitant]
     Active Substance: VORICONAZOLE
     Dates: start: 20240519
  50. ZOLEDRONIC ACID [Concomitant]
     Active Substance: ZOLEDRONIC ACID
     Dates: start: 20240522
  51. CHOLECALCIFEROL [Concomitant]
     Active Substance: CHOLECALCIFEROL
     Dates: start: 20240523
  52. POLASE [MAGNESIUM ASPARTATE;POTASSIUM ASPARTATE] [Concomitant]
     Dates: start: 20240525
  53. CALCIUM CHLORIDE [Concomitant]
     Active Substance: CALCIUM CHLORIDE
     Dates: start: 20240530
  54. OLICLINOMEL [AMINO ACIDS NOS;GLUCOSE;LIPIDS NOS] [Concomitant]
     Dates: start: 20240530
  55. METOCLOPRAMIDE [Concomitant]
     Active Substance: METOCLOPRAMIDE
     Dates: start: 20240530, end: 20240604
  56. BACTRIM [Concomitant]
     Active Substance: SULFAMETHOXAZOLE\TRIMETHOPRIM
     Dates: start: 20240530, end: 20240603
  57. AMPHOTERICIN B [Concomitant]
     Active Substance: AMPHOTERICIN B
     Dates: start: 20240530
  58. INSULIN HUMAN [Concomitant]
     Active Substance: INSULIN HUMAN
     Dates: start: 20240530
  59. ACETYLCYSTEINE [Concomitant]
     Active Substance: ACETYLCYSTEINE
     Dates: start: 20240531
  60. CITALOPRAM [Concomitant]
     Active Substance: CITALOPRAM
     Dates: start: 20240601
  61. TOCILIZUMAB [Concomitant]
     Active Substance: TOCILIZUMAB
     Dates: start: 20240601
  62. MIDAZOLAM [Concomitant]
     Active Substance: MIDAZOLAM
     Dates: start: 20240601
  63. DELORAZEPAM [Concomitant]
     Active Substance: DELORAZEPAM
     Dates: start: 20240601
  64. NEOSTIGMINE METHYLSULFATE [Concomitant]
     Active Substance: NEOSTIGMINE METHYLSULFATE
     Dates: start: 20240603, end: 20240604
  65. CALCIUM GLUCONATE [Concomitant]
     Active Substance: CALCIUM GLUCONATE
     Dates: start: 20240604
  66. ACETAMINOPHEN [Concomitant]
     Active Substance: ACETAMINOPHEN
     Dates: start: 20240507
  67. PIPERACILLIN SODIUM [Concomitant]
     Active Substance: PIPERACILLIN SODIUM
     Dates: start: 20240507, end: 20240519
  68. QUETIAPINE [Concomitant]
     Active Substance: QUETIAPINE
     Dates: start: 20240604
  69. CALCIUM CHLORIDE [Concomitant]
     Active Substance: CALCIUM CHLORIDE
     Dates: start: 20240604
  70. SODIUM SUCCINATE [Concomitant]
     Active Substance: SODIUM SUCCINATE HEXAHYDRATE
     Route: 042
     Dates: start: 20240531, end: 20240601
  71. SULBACTAM SODIUM [Concomitant]
     Active Substance: SULBACTAM SODIUM
     Dates: start: 20240507, end: 20240519
  72. POTASSIUM CHLORIDE [Concomitant]
     Active Substance: POTASSIUM CHLORIDE
     Dates: start: 20240530
  73. SODIUM CHLORIDE [Concomitant]
     Active Substance: SODIUM CHLORIDE
     Dates: start: 20240530
  74. SODIUM ACETATE [Concomitant]
     Active Substance: SODIUM ACETATE
     Dates: start: 20240530
  75. TAZOBACTAM [Concomitant]
     Active Substance: TAZOBACTAM
     Dates: start: 20240507, end: 20240519
  76. PENTETRAZOL [Concomitant]
     Active Substance: PENTETRAZOL
     Dates: start: 20240516, end: 20240529
  77. PNT 2258 [Concomitant]
     Dates: start: 20240530

REACTIONS (13)
  - Necrotising colitis [Fatal]
  - Urine abnormality [Fatal]
  - Chromaturia [Fatal]
  - Flatulence [Fatal]
  - Blood test abnormal [Fatal]
  - Gastric dilatation [Fatal]
  - Abdominal distension [Fatal]
  - Haemoperitoneum [Fatal]
  - Hypotension [Fatal]
  - Pyrexia [Fatal]
  - Respiratory failure [Not Recovered/Not Resolved]
  - General physical health deterioration [Unknown]
  - Immunosuppression [Unknown]

NARRATIVE: CASE EVENT DATE: 20240530
